FAERS Safety Report 24725004 (Version 3)
Quarter: 2025Q1

REPORT INFORMATION
  Report Type: Spontaneous
  Country: US (occurrence: US)
  Receive Date: 20241212
  Receipt Date: 20250222
  Transmission Date: 20250408
  Serious: No
  Sender: SANOFI AVENTIS
  Company Number: US-SA-2024SA365320

PATIENT
  Age: 64 Year
  Sex: Female

DRUGS (28)
  1. REZUROCK [Suspect]
     Active Substance: BELUMOSUDIL
     Indication: Graft versus host disease
     Dosage: 200 MG, QD
     Route: 048
     Dates: start: 202402
  2. METHYLPREDNISOLONE [Concomitant]
     Active Substance: METHYLPREDNISOLONE
  3. ZOLPIDEM [Concomitant]
     Active Substance: ZOLPIDEM TARTRATE
  4. ZOFRAN [Concomitant]
     Active Substance: ONDANSETRON HYDROCHLORIDE
  5. TYLENOL [Concomitant]
     Active Substance: ACETAMINOPHEN
  6. AMOXICILLIN [Concomitant]
     Active Substance: AMOXICILLIN
  7. METOPROLOL SUCCINATE [Concomitant]
     Active Substance: METOPROLOL SUCCINATE
  8. VITAMIN D3 [Concomitant]
     Active Substance: CHOLECALCIFEROL
  9. ORENCIA [Concomitant]
     Active Substance: ABATACEPT
  10. CALCIUM [Concomitant]
     Active Substance: CALCIUM
  11. XANAX [Concomitant]
     Active Substance: ALPRAZOLAM
  12. LOSARTAN [Concomitant]
     Active Substance: LOSARTAN
  13. NITAZOXANIDE [Concomitant]
     Active Substance: NITAZOXANIDE
  14. INGREZZA [Concomitant]
     Active Substance: VALBENAZINE
  15. VITAMINS [Concomitant]
     Active Substance: VITAMINS
  16. VALACYCLOVIR [Concomitant]
     Active Substance: VALACYCLOVIR HYDROCHLORIDE
  17. ESCITALOPRAM [Concomitant]
     Active Substance: ESCITALOPRAM OXALATE
  18. BACTRIM DS [Concomitant]
     Active Substance: SULFAMETHOXAZOLE\TRIMETHOPRIM
  19. POSACONAZOLE [Concomitant]
     Active Substance: POSACONAZOLE
  20. BUSPIRONE [Concomitant]
     Active Substance: BUSPIRONE HYDROCHLORIDE
  21. LOSARTAN [Concomitant]
     Active Substance: LOSARTAN
  22. SODIUM CHLORIDE [Concomitant]
     Active Substance: SODIUM CHLORIDE
  23. ZETIA [Concomitant]
     Active Substance: EZETIMIBE
  24. TYLENOL EXTRA STRENGTH [Concomitant]
     Active Substance: ACETAMINOPHEN
  25. CLOBETASOL [Concomitant]
     Active Substance: CLOBETASOL
  26. NYSTATIN [Concomitant]
     Active Substance: NYSTATIN
  27. REFRESH CLASSIC [Concomitant]
     Active Substance: POLYVINYL ALCOHOL\POVIDONE
  28. CALCIUM CARBONATE [Concomitant]
     Active Substance: CALCIUM CARBONATE

REACTIONS (4)
  - Malaise [Recovering/Resolving]
  - Epstein-Barr virus infection [Not Recovered/Not Resolved]
  - Nausea [Recovering/Resolving]
  - Dyspnoea [Unknown]
